FAERS Safety Report 9428005 (Version 1)
Quarter: 2013Q3

REPORT INFORMATION
  Report Type: Report from Study
  Country: US (occurrence: US)
  Receive Date: 20130730
  Receipt Date: 20130730
  Transmission Date: 20140515
  Serious: No
  Sender: FDA-Public Use
  Company Number: US-ABBOTT-12P-163-0991391-00

PATIENT
  Age: 58 Year
  Sex: Male

DRUGS (2)
  1. NIASPAN (COATED) [Suspect]
     Indication: PRODUCT USED FOR UNKNOWN INDICATION
     Dates: start: 201004
  2. NIASPAN (COATED) [Suspect]

REACTIONS (2)
  - Flushing [Recovering/Resolving]
  - Rash [Not Recovered/Not Resolved]
